FAERS Safety Report 5775470-7 (Version None)
Quarter: 2008Q2

REPORT INFORMATION
  Report Type: 
  Country: None (occurrence: None)
  Receive Date: 20080613
  Receipt Date: 20080603
  Transmission Date: 20081010
  Serious: Yes (Death, Hospitalization)
  Sender: FDA-Public Use
  Company Number: 2008AL006192

PATIENT
  Age: 53 Year
  Sex: Male
  Weight: 88.4514 kg

DRUGS (10)
  1. DIGOXIN [Suspect]
     Indication: CARDIAC FAILURE CONGESTIVE
     Dosage: *0.25MG DAILY PO
     Route: 048
     Dates: start: 20020101, end: 20080504
  2. POTASSIUM CHLORIDE [Concomitant]
  3. PAXIL [Concomitant]
  4. GLUCOPHAGE [Concomitant]
  5. LEVATOL [Concomitant]
  6. GLIPIZIDE [Concomitant]
  7. LASIX [Concomitant]
  8. MONOPRIL [Concomitant]
  9. ASPIRIN [Concomitant]
  10. PREVACID [Concomitant]

REACTIONS (9)
  - ARRHYTHMIA [None]
  - CARDIO-RESPIRATORY ARREST [None]
  - CHILLS [None]
  - DIARRHOEA [None]
  - HEADACHE [None]
  - INFLUENZA LIKE ILLNESS [None]
  - PYREXIA [None]
  - STOMACH DISCOMFORT [None]
  - VOMITING [None]
